FAERS Safety Report 16790964 (Version 2)
Quarter: 2019Q3

REPORT INFORMATION
  Report Type: Spontaneous
  Country: US (occurrence: US)
  Receive Date: 20190910
  Receipt Date: 20190912
  Transmission Date: 20191005
  Serious: Yes (Life-Threatening, Disabling, Other)
  Sender: FDA-Public Use
  Company Number: US-PFIZER INC-2019388988

PATIENT
  Age: 44 Year
  Sex: Male
  Weight: 84.37 kg

DRUGS (2)
  1. VIAGRA [Suspect]
     Active Substance: SILDENAFIL CITRATE
     Dosage: 50 MG, SINGLE (1 TABLET BY MOUTH 1 HR BEFORE SEXUAL ACTIVITY)
     Route: 048
     Dates: start: 20190824, end: 20190824
  2. VIAGRA [Suspect]
     Active Substance: SILDENAFIL CITRATE
     Indication: ERECTILE DYSFUNCTION
     Dosage: 1 DF, SINGLE (TOOK 1 DOSE)

REACTIONS (7)
  - Depression [Unknown]
  - Anxiety [Unknown]
  - Amnesia [Recovered/Resolved with Sequelae]
  - Confusional state [Unknown]
  - Aggression [Unknown]
  - Crying [Unknown]
  - Suicidal ideation [Unknown]

NARRATIVE: CASE EVENT DATE: 20190824
